FAERS Safety Report 10158779 (Version 14)
Quarter: 2015Q2

REPORT INFORMATION
  Report Type: Report from Study
  Country: CA (occurrence: CA)
  Receive Date: 20140508
  Receipt Date: 20150519
  Transmission Date: 20150821
  Serious: Yes (Other)
  Sender: FDA-Public Use
  Company Number: CA-ROCHE-1132612

PATIENT
  Age: 49 Year
  Sex: Male
  Weight: 120 kg

DRUGS (15)
  1. ACTEMRA [Suspect]
     Active Substance: TOCILIZUMAB
     Route: 042
     Dates: start: 20150209
  2. ACTEMRA [Suspect]
     Active Substance: TOCILIZUMAB
     Route: 042
     Dates: start: 20150309
  3. DIPHENHYDRAMINE HCL [Concomitant]
     Active Substance: DIPHENHYDRAMINE HYDROCHLORIDE
     Route: 048
     Dates: start: 20110504, end: 20120307
  4. ACETAMINOPHEN. [Concomitant]
     Active Substance: ACETAMINOPHEN
     Route: 048
     Dates: start: 20110504, end: 20120307
  5. ACTEMRA [Suspect]
     Active Substance: TOCILIZUMAB
     Route: 042
     Dates: start: 20121109
  6. METHYLPREDNISOLONE. [Concomitant]
     Active Substance: METHYLPREDNISOLONE
     Route: 042
     Dates: start: 20110504, end: 20120307
  7. ACETAMINOPHEN. [Concomitant]
     Active Substance: ACETAMINOPHEN
     Route: 048
     Dates: start: 20110504, end: 20120307
  8. METHOTREXATE [Concomitant]
     Active Substance: METHOTREXATE
  9. ADVIL [Concomitant]
     Active Substance: IBUPROFEN
  10. FOLIC ACID. [Concomitant]
     Active Substance: FOLIC ACID
     Indication: MOUTH ULCERATION
  11. METHYLPREDNISOLONE. [Concomitant]
     Active Substance: METHYLPREDNISOLONE
     Route: 042
     Dates: start: 20110504, end: 20120307
  12. ACTEMRA [Suspect]
     Active Substance: TOCILIZUMAB
     Route: 042
     Dates: start: 20130507
  13. RITUXAN [Suspect]
     Active Substance: RITUXIMAB
     Indication: RHEUMATOID ARTHRITIS
     Route: 042
     Dates: start: 20110504, end: 20120307
  14. ACTEMRA [Suspect]
     Active Substance: TOCILIZUMAB
     Route: 042
     Dates: start: 20131202
  15. ACTEMRA [Suspect]
     Active Substance: TOCILIZUMAB
     Indication: RHEUMATOID ARTHRITIS
     Route: 042
     Dates: start: 20120813, end: 20150420

REACTIONS (15)
  - Nasopharyngitis [Unknown]
  - Pain [Unknown]
  - Heart rate decreased [Unknown]
  - Mouth ulceration [Not Recovered/Not Resolved]
  - Influenza [Recovered/Resolved]
  - Unevaluable event [Unknown]
  - Chest discomfort [Unknown]
  - Ear pain [Recovered/Resolved]
  - Eczema [Unknown]
  - Blood pressure increased [Unknown]
  - Infusion related reaction [Unknown]
  - Blood pressure increased [Unknown]
  - Cystitis [Unknown]
  - Weight decreased [Not Recovered/Not Resolved]
  - Folliculitis [Unknown]

NARRATIVE: CASE EVENT DATE: 20121213
